FAERS Safety Report 23607001 (Version 1)
Quarter: 2024Q1

REPORT INFORMATION
  Report Type: Spontaneous
  Country: DE (occurrence: DE)
  Receive Date: 20240307
  Receipt Date: 20240307
  Transmission Date: 20240409
  Serious: Yes (Hospitalization, Other)
  Sender: FDA-Public Use
  Company Number: None

PATIENT
  Age: 71 Year
  Sex: Female
  Weight: 67 kg

DRUGS (11)
  1. CARBOPLATIN [Suspect]
     Active Substance: CARBOPLATIN
     Indication: Non-small cell lung cancer
     Dosage: 276.7 MG
     Route: 065
     Dates: start: 20191021, end: 20191021
  2. PEMETREXED [Suspect]
     Active Substance: PEMETREXED
     Indication: Product used for unknown indication
     Dosage: 660 MG
     Route: 042
     Dates: start: 20191021, end: 20191021
  3. PEMBROLIZUMAB [Suspect]
     Active Substance: PEMBROLIZUMAB
     Indication: Non-small cell lung cancer
     Dosage: 200 MILLIGRAM
     Route: 042
     Dates: start: 20191021, end: 20191021
  4. APREPITANT [Concomitant]
     Active Substance: APREPITANT
     Indication: Product used for unknown indication
     Dosage: 80 MG, DAILY
     Route: 048
     Dates: start: 201910, end: 20191023
  5. ASPIRIN [Concomitant]
     Active Substance: ASPIRIN
     Indication: Product used for unknown indication
     Dosage: 100 MG, DAILY
     Route: 048
  6. CANDESARTAN CILEXETIL [Concomitant]
     Active Substance: CANDESARTAN CILEXETIL
     Indication: Product used for unknown indication
     Dosage: 32 MG, QD
     Route: 048
  7. DEXAMETHASONE [Concomitant]
     Active Substance: DEXAMETHASONE
     Indication: Product used for unknown indication
     Dosage: 4 MG, QD
     Route: 048
     Dates: start: 20191115, end: 20191118
  8. DEXAMETHASONE [Concomitant]
     Active Substance: DEXAMETHASONE
     Dosage: 8 MG, QD
     Route: 048
     Dates: start: 201910, end: 20231023
  9. FOLIC ACID [Concomitant]
     Active Substance: FOLIC ACID
     Indication: Product used for unknown indication
     Dosage: 4 UG, DAILY
     Route: 048
  10. METOPROLOL [Concomitant]
     Active Substance: METOPROLOL
     Indication: Product used for unknown indication
     Dosage: 95 MG, BID
     Route: 065
  11. TORSEMIDE [Concomitant]
     Active Substance: TORSEMIDE
     Indication: Product used for unknown indication
     Dosage: 5 MG, DAILY
     Route: 048

REACTIONS (3)
  - Gastritis [Recovering/Resolving]
  - Duodenitis [Recovering/Resolving]
  - Bone marrow failure [Recovering/Resolving]

NARRATIVE: CASE EVENT DATE: 20191030
